FAERS Safety Report 4485708-4 (Version None)
Quarter: 2004Q4

REPORT INFORMATION
  Report Type: 
  Country: None (occurrence: None)
  Receive Date: 20041026
  Receipt Date: 20040923
  Transmission Date: 20050328
  Serious: Yes (Hospitalization)
  Sender: FDA-Public Use
  Company Number: CN-GLAXOSMITHKLINE-B0346174A

PATIENT
  Age: 68 Year
  Sex: Male
  Weight: 81 kg

DRUGS (1)
  1. SALMETEROL/FLUTICASONE PROPIONATE 50/500UG [Suspect]
     Indication: CHRONIC OBSTRUCTIVE AIRWAYS DISEASE
     Dosage: 1BLS TWICE PER DAY
     Route: 055
     Dates: start: 20020326, end: 20040710

REACTIONS (9)
  - ACID FAST STAIN POSITIVE [None]
  - ASPIRATION PLEURAL CAVITY [None]
  - DYSPNOEA [None]
  - FATIGUE [None]
  - LUNG INFILTRATION [None]
  - NIGHT SWEATS [None]
  - PLEURAL EFFUSION [None]
  - PULMONARY TUBERCULOSIS [None]
  - PYREXIA [None]
